FAERS Safety Report 20145251 (Version 1)
Quarter: 2021Q4

REPORT INFORMATION
  Report Type: Spontaneous
  Country: US (occurrence: US)
  Receive Date: 20211203
  Receipt Date: 20211203
  Transmission Date: 20220303
  Serious: No
  Sender: FDA-Public Use
  Company Number: US-GW PHARMA-202111USGW05901

PATIENT

DRUGS (1)
  1. EPIDIOLEX [Suspect]
     Active Substance: CANNABIDIOL
     Indication: Seizure
     Dosage: 180 MILLIGRAM, BID (FIRST SHIPPED ON 15-SEP-2020)
     Route: 048
     Dates: start: 202009

REACTIONS (4)
  - Seizure [Recovered/Resolved]
  - Product supply issue [Unknown]
  - Product dose omission issue [Unknown]
  - Product distribution issue [Unknown]

NARRATIVE: CASE EVENT DATE: 20211126
